FAERS Safety Report 16134784 (Version 1)
Quarter: 2019Q1

REPORT INFORMATION
  Report Type: Spontaneous
  Country: JP (occurrence: JP)
  Receive Date: 20190329
  Receipt Date: 20190329
  Transmission Date: 20190418
  Serious: Yes (Other)
  Sender: FDA-Public Use
  Company Number: JP-BRACCO-2019JP00998

PATIENT
  Age: 44 Year
  Sex: Male

DRUGS (3)
  1. IOPAMIRON [Suspect]
     Active Substance: IOPAMIDOL
     Indication: COMPUTERISED TOMOGRAM
     Dosage: 80 ML, ONCE
     Dates: start: 20190226, end: 20190226
  2. TELMISARTAN. [Concomitant]
     Active Substance: TELMISARTAN
     Dosage: DAILY DOSE 40 MG
     Route: 048
     Dates: start: 20190204
  3. TELMISARTAN. [Concomitant]
     Active Substance: TELMISARTAN
     Indication: HYPERTENSION
     Dosage: UNK
     Dates: start: 20190204

REACTIONS (2)
  - Contrast media allergy [Recovered/Resolved]
  - Syncope [Recovered/Resolved]

NARRATIVE: CASE EVENT DATE: 20190226
